FAERS Safety Report 17920406 (Version 1)
Quarter: 2020Q2

REPORT INFORMATION
  Report Type: Report from Study
  Country: BR (occurrence: BR)
  Receive Date: 20200620
  Receipt Date: 20200620
  Transmission Date: 20200714
  Serious: Yes (Disabling, Other)
  Sender: FDA-Public Use
  Company Number: NVSC2020BR171291

PATIENT
  Age: 15 Year
  Sex: Male

DRUGS (6)
  1. TRILEPTAL [Suspect]
     Active Substance: OXCARBAZEPINE
     Indication: SEIZURE
     Dosage: 300 MG, QD (1 TABLET BY THE MORNING)
     Route: 065
     Dates: start: 2011
  2. TEGRETOL [Suspect]
     Active Substance: CARBAMAZEPINE
     Indication: CARDIAC DISORDER
     Dosage: UNK
     Route: 065
     Dates: start: 2011
  3. TRILEPTAL [Suspect]
     Active Substance: OXCARBAZEPINE
     Indication: BIPOLAR DISORDER
     Dosage: 600 MG, BID (1 TABLET IN MORNING AND 1 TABLET IN NIGHT)
     Route: 065
     Dates: start: 2018
  4. TEGRETOL [Suspect]
     Active Substance: CARBAMAZEPINE
     Indication: EPILEPSY
  5. TEGRETOL [Suspect]
     Active Substance: CARBAMAZEPINE
     Indication: NEURALGIA
  6. CARBAMAZEPINE. [Suspect]
     Active Substance: CARBAMAZEPINE
     Indication: PRODUCT USED FOR UNKNOWN INDICATION
     Route: 065

REACTIONS (14)
  - Abdominal pain upper [Unknown]
  - Cold sweat [Unknown]
  - Somnolence [Unknown]
  - Seizure [Unknown]
  - Disturbance in attention [Unknown]
  - Pallor [Unknown]
  - Blindness [Unknown]
  - Vision blurred [Unknown]
  - Aggression [Unknown]
  - Obsessive-compulsive disorder [Unknown]
  - Tachycardia [Unknown]
  - Malaise [Unknown]
  - Product use in unapproved indication [Unknown]
  - Agitation [Unknown]

NARRATIVE: CASE EVENT DATE: 2011
